FAERS Safety Report 24321296 (Version 1)
Quarter: 2024Q3

REPORT INFORMATION
  Report Type: Spontaneous
  Country: US (occurrence: US)
  Receive Date: 20240916
  Receipt Date: 20240916
  Transmission Date: 20241016
  Serious: No
  Sender: RANBAXY
  Company Number: US-SUN PHARMACEUTICAL INDUSTRIES LTD-2024R1-429972

PATIENT
  Age: 3 Year
  Sex: Female

DRUGS (1)
  1. LORATADINE [Suspect]
     Active Substance: LORATADINE
     Indication: Product used for unknown indication
     Dosage: UNK (5 MILLIGRAM)
     Route: 065
     Dates: start: 20240121

REACTIONS (1)
  - Product administration error [Unknown]

NARRATIVE: CASE EVENT DATE: 20240122
